FAERS Safety Report 25758877 (Version 1)
Quarter: 2025Q3

REPORT INFORMATION
  Report Type: Spontaneous
  Country: JP (occurrence: JP)
  Receive Date: 20250904
  Receipt Date: 20250904
  Transmission Date: 20251020
  Serious: Yes (Hospitalization, Other)
  Sender: ACCORD
  Company Number: JP-Accord-419504

PATIENT
  Age: 7 Decade
  Sex: Female

DRUGS (3)
  1. METHOTREXATE [Suspect]
     Active Substance: METHOTREXATE
     Indication: Rheumatoid arthritis
  2. INFLIXIMAB [Suspect]
     Active Substance: INFLIXIMAB
     Indication: Product used for unknown indication
  3. ETANERCEPT [Suspect]
     Active Substance: ETANERCEPT
     Indication: Product used for unknown indication

REACTIONS (9)
  - Epstein-Barr virus associated lymphoproliferative disorder [Recovered/Resolved]
  - Epstein Barr virus positive mucocutaneous ulcer [Unknown]
  - Peritonitis [Unknown]
  - Small intestinal perforation [Unknown]
  - Mitral valve incompetence [Recovered/Resolved]
  - Tricuspid valve incompetence [Recovered/Resolved]
  - Aortic valve incompetence [Recovered/Resolved]
  - Diffuse large B-cell lymphoma [Recovered/Resolved]
  - Cardiac failure [Recovered/Resolved]
